FAERS Safety Report 5166546-6 (Version None)
Quarter: 2006Q4

REPORT INFORMATION
  Report Type: 
  Country: None (occurrence: None)
  Receive Date: 20061129
  Receipt Date: 20061113
  Transmission Date: 20070319
  Serious: Yes (Death)
  Sender: FDA-Public Use
  Company Number: 2006002158

PATIENT
  Age: 51 Year
  Sex: Male

DRUGS (1)
  1. ERLOTINIB (TABLET) (ERLOTINIB HCL) [Suspect]
     Indication: NON-SMALL CELL LUNG CANCER
     Dosage: 150 MG (QD); ORAL
     Route: 048
     Dates: start: 20060818, end: 20061012

REACTIONS (1)
  - GASTROINTESTINAL HAEMORRHAGE [None]
